FAERS Safety Report 14570719 (Version 1)
Quarter: 2018Q1

REPORT INFORMATION
  Report Type: Spontaneous
  Country: US (occurrence: US)
  Receive Date: 20180226
  Receipt Date: 20180226
  Transmission Date: 20180509
  Serious: No
  Sender: FDA-Public Use
  Company Number: US-BRISTOL-MYERS SQUIBB COMPANY-BMS-2018-018033

PATIENT
  Sex: Female

DRUGS (1)
  1. OPDIVO [Suspect]
     Active Substance: NIVOLUMAB
     Indication: NEOPLASM
     Route: 065

REACTIONS (5)
  - Muscle spasms [Unknown]
  - Adverse event [Unknown]
  - Swelling [Unknown]
  - Rash [Unknown]
  - Joint swelling [Unknown]
